FAERS Safety Report 18752310 (Version 1)
Quarter: 2021Q1

REPORT INFORMATION
  Report Type: Spontaneous
  Country: US (occurrence: US)
  Receive Date: 20210118
  Receipt Date: 20210118
  Transmission Date: 20210419
  Serious: No
  Sender: FDA-Public Use
  Company Number: US-FOUNDATIONCONSUMERHC-2020-US-023935

PATIENT
  Age: 26 Year
  Sex: Female
  Weight: 86.18 kg

DRUGS (2)
  1. ALEVE [Concomitant]
     Active Substance: NAPROXEN SODIUM
  2. AFTERA [Suspect]
     Active Substance: LEVONORGESTREL
     Indication: PRODUCT USE IN UNAPPROVED INDICATION
     Dosage: 1.5MG X 1 DOSE
     Route: 048
     Dates: start: 20201123, end: 20201123

REACTIONS (5)
  - Intentional product misuse [Recovered/Resolved]
  - Asthenia [Not Recovered/Not Resolved]
  - Exposure during pregnancy [Recovered/Resolved]
  - Product use in unapproved indication [Recovered/Resolved]
  - Diarrhoea [Recovered/Resolved]

NARRATIVE: CASE EVENT DATE: 20201123
